FAERS Safety Report 24930025 (Version 1)
Quarter: 2025Q1

REPORT INFORMATION
  Report Type: Spontaneous
  Country: US (occurrence: US)
  Receive Date: 20250205
  Receipt Date: 20250205
  Transmission Date: 20250409
  Serious: No
  Sender: SANDOZ
  Company Number: US-SANDOZ-SDZ2025US006286

PATIENT
  Sex: Female
  Weight: 56 kg

DRUGS (3)
  1. ESTRADIOL [Suspect]
     Active Substance: ESTRADIOL
     Indication: Menopausal symptoms
     Dosage: 0.0375 MG
     Route: 062
  2. ESTRADIOL [Suspect]
     Active Substance: ESTRADIOL
     Route: 062
  3. PROMETRIUM [Concomitant]
     Active Substance: PROGESTERONE
     Indication: Product used for unknown indication
     Route: 065

REACTIONS (2)
  - Blood oestrogen decreased [Recovered/Resolved]
  - Product adhesion issue [Unknown]
